FAERS Safety Report 5877910-1 (Version None)
Quarter: 2008Q3

REPORT INFORMATION
  Report Type: 
  Country: None (occurrence: None)
  Receive Date: 20080911
  Receipt Date: 20080908
  Transmission Date: 20090109
  Serious: Yes (Hospitalization)
  Sender: FDA-Public Use
  Company Number: A0746338A

PATIENT
  Age: 70 Year
  Sex: Female

DRUGS (10)
  1. WELLBUTRIN SR [Suspect]
     Indication: DEPRESSION
     Dosage: 150MG THREE TIMES PER DAY
     Route: 048
     Dates: start: 19980101
  2. BUPROPION HYDROCHLORIDE [Suspect]
     Indication: DEPRESSION
     Dosage: 150MG THREE TIMES PER DAY
     Route: 048
     Dates: start: 20080101
  3. PRILOSEC [Concomitant]
  4. ZYRTEC [Concomitant]
  5. METHADONE HCL [Concomitant]
  6. PAROXETINE HCL [Concomitant]
  7. TRAZODONE HCL [Concomitant]
  8. PREMARIN [Concomitant]
  9. MELOXICAM [Concomitant]
  10. VITAMIN TAB [Concomitant]

REACTIONS (15)
  - ATRIAL FIBRILLATION [None]
  - BLISTER [None]
  - CARDIOMEGALY [None]
  - DEPRESSED MOOD [None]
  - DERMATITIS CONTACT [None]
  - EUPHORIC MOOD [None]
  - FATIGUE [None]
  - HEART RATE IRREGULAR [None]
  - MALAISE [None]
  - OBSESSIVE THOUGHTS [None]
  - PALPITATIONS [None]
  - RASH [None]
  - THINKING ABNORMAL [None]
  - VIRAL INFECTION [None]
  - WALKING AID USER [None]
